FAERS Safety Report 17769316 (Version 1)
Quarter: 2020Q2

REPORT INFORMATION
  Report Type: Spontaneous
  Country: CA (occurrence: CA)
  Receive Date: 20200512
  Receipt Date: 20200512
  Transmission Date: 20200714
  Serious: Yes (Other)
  Sender: FDA-Public Use
  Company Number: CA-ROCHE-2596600

PATIENT
  Age: 50 Year
  Sex: Male
  Weight: 93 kg

DRUGS (15)
  1. METHYLPREDNISOLONE. [Concomitant]
     Active Substance: METHYLPREDNISOLONE
     Route: 042
  2. ISOPHANE INSULIN [Concomitant]
     Active Substance: INSULIN NOS
  3. METFORMIN [Concomitant]
     Active Substance: METFORMIN HYDROCHLORIDE
     Route: 065
  4. DIPHENHYDRAMINE HYDROCHLORIDE. [Concomitant]
     Active Substance: DIPHENHYDRAMINE HYDROCHLORIDE
     Route: 048
  5. OXYNEO [Concomitant]
     Active Substance: OXYCODONE
  6. PREDNISONE. [Concomitant]
     Active Substance: PREDNISONE
     Route: 065
  7. LYRICA [Suspect]
     Active Substance: PREGABALIN
     Route: 048
  8. APO-SULFATRIM [Concomitant]
     Active Substance: SULFAMETHOXAZOLE\TRIMETHOPRIM
  9. SUPEUDOL [Concomitant]
     Active Substance: OXYCODONE HYDROCHLORIDE
     Route: 065
  10. RITUXIMAB. [Suspect]
     Active Substance: RITUXIMAB
     Indication: GRANULOMATOSIS WITH POLYANGIITIS
     Route: 042
  11. LYRICA [Suspect]
     Active Substance: PREGABALIN
     Indication: PRODUCT USED FOR UNKNOWN INDICATION
     Route: 048
  12. LYRICA [Suspect]
     Active Substance: PREGABALIN
     Route: 048
  13. ACETAMINOPHEN. [Concomitant]
     Active Substance: ACETAMINOPHEN
     Route: 048
  14. DIOVAN [Concomitant]
     Active Substance: VALSARTAN
  15. SAXAGLIPTIN HYDROCHLORIDE. [Concomitant]
     Active Substance: SAXAGLIPTIN HYDROCHLORIDE

REACTIONS (8)
  - Blood pressure increased [Recovered/Resolved]
  - Sensory loss [Recovered/Resolved]
  - Blood pressure fluctuation [Recovered/Resolved]
  - Heart rate increased [Recovered/Resolved]
  - Dyspnoea [Recovered/Resolved]
  - Blood pressure diastolic increased [Recovered/Resolved]
  - Wound complication [Recovered/Resolved]
  - Neuralgia [Recovered/Resolved]
